FAERS Safety Report 9332088 (Version 1)
Quarter: 2013Q2

REPORT INFORMATION
  Report Type: Spontaneous
  Country: FR (occurrence: FR)
  Receive Date: 20130605
  Receipt Date: 20130605
  Transmission Date: 20140414
  Serious: Yes (Hospitalization)
  Sender: FDA-Public Use
  Company Number: FR-ROCHE-1232348

PATIENT
  Age: 52 Year
  Sex: Female

DRUGS (4)
  1. HERCEPTIN [Suspect]
     Indication: BREAST CANCER
     Dosage: 150 MG
     Route: 041
     Dates: start: 20130410
  2. TAXOTERE [Suspect]
     Indication: BREAST CANCER
     Dosage: 80 MG/2ML
     Route: 041
     Dates: start: 20130410
  3. ENDOXAN [Suspect]
     Indication: BREAST CANCER
     Dosage: 1000 MG, LYOPHILISATE FOR INJECTABLE SOLUTION
     Route: 041
     Dates: start: 20130410
  4. INEXIUM [Suspect]
     Indication: PRODUCT USED FOR UNKNOWN INDICATION
     Dosage: 20 MG
     Route: 048
     Dates: start: 20130410

REACTIONS (1)
  - Urticaria [Recovered/Resolved]
